FAERS Safety Report 16001885 (Version 1)
Quarter: 2019Q1

REPORT INFORMATION
  Report Type: Spontaneous
  Country: IT (occurrence: IT)
  Receive Date: 20190225
  Receipt Date: 20190225
  Transmission Date: 20190418
  Serious: Yes (Other)
  Sender: FDA-Public Use
  Company Number: IT-MYLANLABS-2019M1016005

PATIENT
  Sex: Female

DRUGS (2)
  1. PREDNISONE. [Suspect]
     Active Substance: PREDNISONE
     Indication: CHOREA
     Dosage: 1 MILLIGRAM/KILOGRAM, QD
  2. CHLORPROMAZINE. [Suspect]
     Active Substance: CHLORPROMAZINE
     Indication: CHOREA
     Dosage: 10 MILLIGRAM/KILOGRAM, QD

REACTIONS (4)
  - Hypotonia [Recovered/Resolved]
  - Sydenham^s chorea [Recovered/Resolved]
  - Motor dysfunction [Recovered/Resolved]
  - Parkinsonism [Recovered/Resolved]
